FAERS Safety Report 12485162 (Version 1)
Quarter: 2016Q2

REPORT INFORMATION
  Report Type: Spontaneous
  Country: US (occurrence: US)
  Receive Date: 20160621
  Receipt Date: 20160621
  Transmission Date: 20160815
  Serious: Yes (Other)
  Sender: FDA-Public Use
  Company Number: US-AKORN PHARMACEUTICALS-2016AKN00355

PATIENT
  Age: 13 Year
  Sex: Female
  Weight: 65.76 kg

DRUGS (1)
  1. MYORISAN [Suspect]
     Active Substance: ISOTRETINOIN
     Indication: ACNE CYSTIC
     Dosage: 20 MG, 2X/DAY
     Route: 048
     Dates: start: 20160324, end: 20160330

REACTIONS (2)
  - Polymenorrhoea [Recovering/Resolving]
  - Depressive symptom [Recovered/Resolved]

NARRATIVE: CASE EVENT DATE: 201603
